FAERS Safety Report 7776029-2 (Version None)
Quarter: 2011Q3

REPORT INFORMATION
  Report Type: 
  Country: None (occurrence: None)
  Receive Date: 20110923
  Receipt Date: 20110919
  Transmission Date: 20111222
  Serious: Yes (Death)
  Sender: FDA-Public Use
  Company Number: DE-GENENTECH-324707

PATIENT
  Sex: Female

DRUGS (2)
  1. LUCENTIS [Suspect]
     Indication: MACULAR DEGENERATION
     Dosage: UNK UNK, UNKNOWN
     Route: 031
     Dates: end: 20110518
  2. VITALUX PLUS (GERMANY) [Suspect]
     Indication: MACULAR DEGENERATION
     Dosage: UNK

REACTIONS (1)
  - DEATH [None]
